FAERS Safety Report 11055304 (Version 2)
Quarter: 2015Q2

REPORT INFORMATION
  Report Type: Spontaneous
  Country: US (occurrence: US)
  Receive Date: 20150422
  Receipt Date: 20150610
  Transmission Date: 20150821
  Serious: No
  Sender: FDA-Public Use
  Company Number: US-PFIZER INC-2015129915

PATIENT
  Age: 58 Year
  Sex: Male
  Weight: 61.22 kg

DRUGS (1)
  1. SUTENT [Suspect]
     Active Substance: SUNITINIB MALATE
     Indication: RENAL CANCER STAGE IV
     Dosage: 50 MG, DAILY
     Dates: start: 20150317, end: 20150417

REACTIONS (3)
  - Weight decreased [Unknown]
  - Renal disorder [Unknown]
  - Decreased appetite [Unknown]
